FAERS Safety Report 20897579 (Version 2)
Quarter: 2022Q3

REPORT INFORMATION
  Report Type: Spontaneous
  Country: US (occurrence: US)
  Receive Date: 20220531
  Receipt Date: 20220706
  Transmission Date: 20221027
  Serious: No
  Sender: FDA-Public Use
  Company Number: US-PFIZER INC-202200765693

PATIENT
  Age: 75 Year
  Sex: Female
  Weight: 61.224 kg

DRUGS (5)
  1. PAXLOVID [Suspect]
     Active Substance: NIRMATRELVIR\RITONAVIR
     Indication: COVID-19 treatment
     Dosage: 2 DF, 2X/DAY (2 TABLETS BID X 5 DAYS)
     Route: 048
     Dates: start: 20220504, end: 20220509
  2. VALSARTAN [Concomitant]
     Active Substance: VALSARTAN
     Indication: Hypertension
     Dosage: UNK, DAILY
     Dates: start: 2018
  3. VALSARTAN [Concomitant]
     Active Substance: VALSARTAN
     Dosage: 20 MG, 1X/DAY
     Dates: start: 20220625
  4. LUNESTA [Concomitant]
     Active Substance: ESZOPICLONE
     Dosage: UNK
  5. ST. JOHN^S WORT [Concomitant]
     Active Substance: ST. JOHN^S WORT
     Dosage: UNK
     Dates: end: 20220502

REACTIONS (3)
  - COVID-19 [Recovered/Resolved with Sequelae]
  - Dizziness [Not Recovered/Not Resolved]
  - Incorrect dose administered [Unknown]

NARRATIVE: CASE EVENT DATE: 20220101
